FAERS Safety Report 16348139 (Version 1)
Quarter: 2019Q2

REPORT INFORMATION
  Report Type: Report from Study
  Country: US (occurrence: US)
  Receive Date: 20190523
  Receipt Date: 20190523
  Transmission Date: 20190711
  Serious: No
  Sender: FDA-Public Use
  Company Number: US-IGSA-SR10007973

PATIENT
  Age: 57 Year
  Sex: Female
  Weight: 73 kg

DRUGS (1)
  1. GAMUNEX-C [Suspect]
     Active Substance: HUMAN IMMUNOGLOBULIN G
     Indication: SELECTIVE IGG SUBCLASS DEFICIENCY
     Dosage: 20 G, UNK
     Route: 058
     Dates: start: 20190220, end: 20190220

REACTIONS (3)
  - Constipation [Recovered/Resolved]
  - Pruritus [Recovered/Resolved]
  - Infusion site reaction [Recovered/Resolved]

NARRATIVE: CASE EVENT DATE: 20190220
